FAERS Safety Report 6343658-2 (Version None)
Quarter: 2009Q3

REPORT INFORMATION
  Report Type: 
  Country: None (occurrence: None)
  Receive Date: 20090903
  Receipt Date: 20090824
  Transmission Date: 20100115
  Serious: Yes (Other)
  Sender: FDA-Public Use
  Company Number: A-US2009-26996

PATIENT
  Age: 58 Year
  Sex: Female
  Weight: 112.9 kg

DRUGS (14)
  1. TRACLEER [Suspect]
     Indication: PULMONARY HYPERTENSION
     Dosage: 125MG, BID, ORAL
     Route: 048
     Dates: start: 20090702, end: 20090730
  2. VITAMIN B COMPLEX CAP [Concomitant]
  3. ULTRAM [Concomitant]
  4. PREMPRO [Concomitant]
  5. PAROXETINE (PAROXETINE HYDROCHLORIDE) [Concomitant]
  6. LUNESTA [Concomitant]
  7. LORTAB (HYDROCODONE BITARTRATE, PARACETAMOL, PROMETHAZINE HYDROCHLORID [Concomitant]
  8. LAMOTRIGINE (LAMOTRGINE) [Concomitant]
  9. L-LYSINE (LYSINE) [Concomitant]
  10. IBUPROFEN [Concomitant]
  11. CYMBALTA [Concomitant]
  12. CITRACAL +D (ERGOCALCIFEROL, CALCIUM CITRATE) [Concomitant]
  13. VITAMINS [Concomitant]
  14. AMITRIPTYLINE HYDROCHLORIDE [Concomitant]

REACTIONS (4)
  - EPISTAXIS [None]
  - HEADACHE [None]
  - NASAL DISCOMFORT [None]
  - OEDEMA PERIPHERAL [None]
